FAERS Safety Report 13357639 (Version 2)
Quarter: 2017Q2

REPORT INFORMATION
  Report Type: Report from Study
  Country: None (occurrence: US)
  Receive Date: 20170322
  Receipt Date: 20170510
  Transmission Date: 20170830
  Serious: Yes (Other)
  Sender: FDA-Public Use
  Company Number: US-ABBVIE-17K-163-1910200-00

PATIENT
  Age: 19 Year
  Sex: Male
  Weight: 72.64 kg

DRUGS (1)
  1. HUMIRA [Suspect]
     Active Substance: ADALIMUMAB
     Indication: PSORIASIS
     Route: 058
     Dates: start: 201606, end: 201703

REACTIONS (4)
  - Psoriasis [Unknown]
  - Decreased appetite [Unknown]
  - Blindness [Unknown]
  - Cold sweat [Unknown]

NARRATIVE: CASE EVENT DATE: 201704
